FAERS Safety Report 4365447-0 (Version None)
Quarter: 2004Q2

REPORT INFORMATION
  Report Type: 
  Country: None (occurrence: None)
  Receive Date: 20040525
  Receipt Date: 20040525
  Transmission Date: 20050107
  Serious: Yes (Death)
  Sender: FDA-Public Use
  Company Number: None

PATIENT
  Age: 76 Year
  Sex: Male
  Weight: 81.7 kg

DRUGS (6)
  1. INTEGRILIN [Suspect]
     Indication: STENT PLACEMENT
     Dosage: 13.2 MG/BOLUS 12ML/HR
     Dates: start: 20040416
  2. ASPIRIN [Concomitant]
  3. PLAVIX [Concomitant]
  4. LISINOPRIL [Concomitant]
  5. ZOCOR [Concomitant]
  6. TOPROL-XL [Concomitant]

REACTIONS (4)
  - AGGRESSION [None]
  - AGITATION [None]
  - CARDIO-RESPIRATORY ARREST [None]
  - HAEMORRHAGE [None]
